FAERS Safety Report 23991253 (Version 2)
Quarter: 2024Q2

REPORT INFORMATION
  Report Type: Spontaneous
  Country: JP (occurrence: JP)
  Receive Date: 20240619
  Receipt Date: 20240628
  Transmission Date: 20240715
  Serious: Yes (Hospitalization)
  Sender: FDA-Public Use
  Company Number: JP-Eisai-202403127_LEN-EC_P_1

PATIENT
  Age: 62 Year
  Sex: Female

DRUGS (3)
  1. LENVIMA [Suspect]
     Active Substance: LENVATINIB
     Indication: Endometrial cancer
     Dosage: 1 COURSES
     Route: 048
     Dates: start: 20240508, end: 202405
  2. LENVIMA [Suspect]
     Active Substance: LENVATINIB
     Dosage: FREQUENCY UNKNOWN
     Route: 048
     Dates: start: 20240617
  3. KEYTRUDA [Concomitant]
     Active Substance: PEMBROLIZUMAB
     Indication: Endometrial cancer
     Dosage: 1 COURSES
     Route: 042
     Dates: start: 20240508

REACTIONS (7)
  - Renal disorder [Recovered/Resolved]
  - Platelet count decreased [Recovered/Resolved]
  - Thrombotic microangiopathy [Recovered/Resolved]
  - Hypertension [Recovered/Resolved]
  - Blood bilirubin increased [Recovered/Resolved]
  - Hepatic function abnormal [Recovered/Resolved]
  - Blood thyroid stimulating hormone increased [Recovered/Resolved]

NARRATIVE: CASE EVENT DATE: 20240524
